FAERS Safety Report 6970225-X (Version None)
Quarter: 2010Q3

REPORT INFORMATION
  Report Type: 
  Country: None (occurrence: None)
  Receive Date: 20100908
  Receipt Date: 20100825
  Transmission Date: 20110219
  Serious: Yes (Other)
  Sender: FDA-Public Use
  Company Number: ES-ELI_LILLY_AND_COMPANY-ES201008007762

PATIENT
  Sex: Female
  Weight: 78 kg

DRUGS (6)
  1. FORTEO [Suspect]
     Indication: OSTEOPOROSIS
     Dosage: 20 UG, DAILY (1/D)
     Route: 058
     Dates: start: 20090115, end: 20100801
  2. LEXATIN [Concomitant]
     Indication: INSOMNIA
     Dosage: 1 D/F, DAILY (1/D)
     Route: 048
  3. ACETAMINOPHEN [Concomitant]
     Indication: PAIN
     Dosage: UNK, UNKNOWN
     Route: 048
  4. IBUPROFEN TABLETS [Concomitant]
     Indication: PAIN
     Dosage: IF PAIN
     Route: 048
  5. ANTIDEPRESSANTS [Concomitant]
     Indication: ANTIDEPRESSANT THERAPY
     Dosage: UNK, DAILY (1/D)
     Route: 048
  6. CHEMOTHERAPEUTICS [Concomitant]
     Indication: CHEMOTHERAPY
     Route: 048

REACTIONS (1)
  - METASTASES TO BONE [None]
